FAERS Safety Report 21437938 (Version 9)
Quarter: 2023Q1

REPORT INFORMATION
  Report Type: Spontaneous
  Country: DE (occurrence: DE)
  Receive Date: 20221011
  Receipt Date: 20230126
  Transmission Date: 20230418
  Serious: Yes (Other)
  Sender: FDA-Public Use
  Company Number: DE-EMA-DD-20220929-116353-152047

PATIENT
  Age: 29 Year
  Sex: Male

DRUGS (22)
  1. DICLOFENAC [Suspect]
     Active Substance: DICLOFENAC
     Indication: Bone pain
     Dosage: UNK, NON-STEROIDAL ANTI-INFLAMMATORY DRUG DICLOFENAC
     Route: 065
  2. DICLOFENAC [Suspect]
     Active Substance: DICLOFENAC
     Indication: Pain
     Dosage: UNK (NON-STEROIDAL ANTI-INFLAMMATORY DRUG DICLOFENAC ))
     Route: 065
  3. HYDROMORPHONE [Suspect]
     Active Substance: HYDROMORPHONE
     Indication: Pain
     Dosage: 16 MILLIGRAM, ONCE A DAY (16 MG HYDROMORPHONE IN A 24-HOUR GALENIC/ EVERY 24 HOURS)
     Route: 065
     Dates: start: 2017
  4. IBUPROFEN [Suspect]
     Active Substance: IBUPROFEN
     Indication: Bone pain
     Dosage: UNK, AS NECESSARY,FROM : //2016 TO : WHENEVER AFFLICTED WITH BONE
     Route: 065
     Dates: start: 2016
  5. IBUPROFEN [Suspect]
     Active Substance: IBUPROFEN
     Dosage: UNK, AS NECESSARY (1 AS NECESSARY(FROM : //2016 TO : WHENEVER AFFLICTED WITH BONE)
     Route: 065
  6. LENALIDOMIDE [Suspect]
     Active Substance: LENALIDOMIDE
     Indication: Immunomodulatory therapy
     Dosage: 300 MILLIGRAM, ONCE A DAY
     Route: 065
  7. LENALIDOMIDE [Suspect]
     Active Substance: LENALIDOMIDE
     Dosage: UNK
     Route: 065
     Dates: start: 2021
  8. OXYCODONE [Suspect]
     Active Substance: OXYCODONE
     Indication: Analgesic therapy
     Dosage: UNK (ORAL OPIOID THERAPY WITH PROLONGED-RELEASE OXYCODONE) (30-30-40 MG)
     Route: 048
  9. OXYCODONE [Suspect]
     Active Substance: OXYCODONE
     Dosage: 100 MILLIGRAM, 3 TIMES A DAY
     Route: 048
  10. PREGABALIN [Suspect]
     Active Substance: PREGABALIN
     Indication: Pain
     Dosage: 50 MILLIGRAM, 3 TIMES A DAY (50-50-150 MG)
     Route: 065
     Dates: end: 2019
  11. PREGABALIN [Suspect]
     Active Substance: PREGABALIN
     Indication: Analgesic therapy
     Dosage: 300 MILLIGRAM, ONCE A DAY
     Route: 065
  12. PREGABALIN [Suspect]
     Active Substance: PREGABALIN
     Dosage: ONCE A DAY (PREGABALIN THREE TIMES A DAY)
     Route: 065
  13. PREGABALIN [Suspect]
     Active Substance: PREGABALIN
     Dosage: 150 MILLIGRAM, ONCE A DAY (IN THE MORNING AND IN THE EVENING)
     Route: 065
     Dates: start: 2019
  14. AMBROXOL [Suspect]
     Active Substance: AMBROXOL
     Indication: Pain
     Dosage: UNK (LOCAL THERAPY ON THE SHOULDER)
     Route: 065
  15. AMBROXOL [Suspect]
     Active Substance: AMBROXOL
     Indication: Arthralgia
     Dosage: UNK(CREAM CONTAINING 20% AMBROXOL )
     Route: 065
     Dates: start: 2019
  16. AMITRIPTYLINE [Suspect]
     Active Substance: AMITRIPTYLINE
     Indication: Pain
     Dosage: 25 MILLIGRAM, ONCE A DAY (AMITRIPTYLINE AT NIGHT)
     Route: 065
  17. DRONABINOL [Suspect]
     Active Substance: DRONABINOL
     Indication: Pain
     Dosage: 2.5 MILLIGRAM PER GRAM, ONCE A DAY, 2.5 MG, QD (A DAILY DOSE OF 2.5-2.5-7.5 MG THC 10 ADMINISTERED)
     Route: 048
     Dates: start: 2020
  18. DRONABINOL [Suspect]
     Active Substance: DRONABINOL
     Dosage: 2.5 MILLIGRAM PER GRAM (5 DAY) 2.5 MG, QD (A DAILY DOSE OF 2.5-2.5-7.5 MG THC 10 ADMINISTERED)
     Route: 048
     Dates: start: 2022
  19. MORPHINE [Suspect]
     Active Substance: MORPHINE
     Indication: Pain
     Dosage: 10 MILLIGRAM (ORAL OPIOID THERAPY/ 10 MG OF MORPHINE REQUIRED BETWEEN SIX AND EIGHT TIMES DAILY)
     Route: 048
  20. HERBALS\TETRAHYDROCANNABINOL UNSPECIFIED [Suspect]
     Active Substance: HERBALS\TETRAHYDROCANNABINOL UNSPECIFIED
     Indication: Pain
     Dosage: 2.5 MILLIGRAM PER GRAM (EVERY 5 DAY)
     Route: 048
     Dates: start: 2020
  21. ZOLEDRONIC ACID [Suspect]
     Active Substance: ZOLEDRONIC ACID
     Indication: Pain
     Dosage: UNK (I.V. EVERY FOUR WEEKS)
     Route: 042
  22. ZOLEDRONIC ACID [Suspect]
     Active Substance: ZOLEDRONIC ACID
     Indication: Analgesic therapy
     Dosage: UNK
     Route: 042
     Dates: start: 2021

REACTIONS (10)
  - Neoplasm progression [Not Recovered/Not Resolved]
  - Metastasis [Unknown]
  - Sleep disorder [Recovered/Resolved]
  - Decreased appetite [Recovered/Resolved]
  - Depression [Recovered/Resolved]
  - Condition aggravated [Recovered/Resolved]
  - Fatigue [Not Recovered/Not Resolved]
  - Somnolence [Recovered/Resolved]
  - Poor quality sleep [Recovering/Resolving]
  - Drug ineffective [Unknown]

NARRATIVE: CASE EVENT DATE: 20170101
